FAERS Safety Report 8890607 (Version 2)
Quarter: 2012Q4

REPORT INFORMATION
  Report Type: 
  Country: ES (occurrence: ES)
  Receive Date: 20121106
  Receipt Date: 20121130
  Transmission Date: 20130627
  Serious: Yes (Hospitalization)
  Sender: FDA-Public Use
  Company Number: ES-WATSON-2012-18736

PATIENT
  Age: 61 Year
  Sex: Male

DRUGS (9)
  1. ACYCLOVIR (UNKNOWN) [Suspect]
     Indication: ENCEPHALITIS VIRAL
     Dosage: 800 mg, q8h
     Route: 042
  2. ENOXAPARIN [Concomitant]
     Indication: PRODUCT USED FOR UNKNOWN INDICATION
     Dosage: 40 mg, q24h
     Route: 058
  3. AMLODIPINE [Concomitant]
     Indication: PRODUCT USED FOR UNKNOWN INDICATION
     Dosage: 10 mg, q24h
     Route: 048
  4. INSULIN RAPID [Concomitant]
     Indication: BLOOD GLUCOSE
     Dosage: UNK, unknown
     Route: 058
  5. METOCLOPRAMIDE [Concomitant]
     Indication: NAUSEA
     Dosage: 10 mg, q8h
     Route: 042
  6. METOCLOPRAMIDE [Concomitant]
     Indication: VOMITING
  7. ACETAMINOPHEN [Concomitant]
     Indication: PYREXIA
     Dosage: 1000 mg, q24h
     Route: 042
  8. ACETAMINOPHEN [Concomitant]
     Indication: PAIN
  9. CITALOPRAM [Concomitant]
     Indication: DEPRESSIVE SYMPTOM
     Dosage: 10 mg, q24h
     Route: 048

REACTIONS (1)
  - Hyponatraemia [Recovered/Resolved]
